FAERS Safety Report 11472125 (Version 1)
Quarter: 2015Q3

REPORT INFORMATION
  Report Type: Spontaneous
  Country: US (occurrence: US)
  Receive Date: 20150908
  Receipt Date: 20150908
  Transmission Date: 20151125
  Serious: No
  Sender: FDA-Public Use
  Company Number: US-SA-2015SA116976

PATIENT
  Age: 63 Year
  Sex: Female

DRUGS (10)
  1. SOLOSTAR [Suspect]
     Active Substance: DEVICE
  2. SOLOSTAR [Suspect]
     Active Substance: DEVICE
  3. TOUJEO [Suspect]
     Active Substance: INSULIN GLARGINE
     Indication: TYPE 2 DIABETES MELLITUS
     Dosage: DOSE:38 UNIT(S)
     Route: 065
     Dates: start: 20150729
  4. TOUJEO [Suspect]
     Active Substance: INSULIN GLARGINE
     Indication: TYPE 2 DIABETES MELLITUS
     Dosage: DOSE:38 UNIT(S)
     Route: 065
     Dates: start: 20150729
  5. TOUJEO [Suspect]
     Active Substance: INSULIN GLARGINE
     Indication: TYPE 2 DIABETES MELLITUS
     Dosage: DOSE:34 UNIT(S)
     Route: 065
  6. VICTOZA [Concomitant]
     Active Substance: LIRAGLUTIDE
  7. SOLOSTAR [Suspect]
     Active Substance: DEVICE
     Dates: start: 20150729
  8. SOLOSTAR [Suspect]
     Active Substance: DEVICE
     Dates: start: 20150729
  9. TOUJEO [Suspect]
     Active Substance: INSULIN GLARGINE
     Indication: TYPE 2 DIABETES MELLITUS
     Dosage: DOSE:34 UNIT(S)
     Route: 065
  10. LANTUS SOLOSTAR [Concomitant]
     Active Substance: INSULIN GLARGINE
     Dates: end: 20150729

REACTIONS (2)
  - Blood glucose decreased [Unknown]
  - Blood glucose abnormal [Unknown]
